FAERS Safety Report 19659627 (Version 2)
Quarter: 2021Q4

REPORT INFORMATION
  Report Type: Spontaneous
  Country: US (occurrence: US)
  Receive Date: 20210805
  Receipt Date: 20211022
  Transmission Date: 20220304
  Serious: Yes (Other)
  Sender: FDA-Public Use
  Company Number: US-JNJFOC-20210755529

PATIENT
  Age: 62 Year
  Sex: Male

DRUGS (4)
  1. NEUTROGENA BEACH DEFENSE WATER PLUS SUN PROTECTION SUNSCREEN BROAD SPE [Suspect]
     Active Substance: AVOBENZONE\HOMOSALATE\OCTISALATE\OCTOCRYLENE\OXYBENZONE
     Indication: Prophylaxis against solar radiation
     Dosage: SPRAY EVERY 80 MIN, AS SUGGESTED WHEN EVER WORKING OUTSIDE
     Route: 061
     Dates: end: 20210715
  2. MELOXICAM [Concomitant]
     Active Substance: MELOXICAM
     Indication: Arthritis
     Route: 065
  3. HYZAAR [Concomitant]
     Active Substance: HYDROCHLOROTHIAZIDE\LOSARTAN POTASSIUM
     Indication: Hypertension
     Route: 065
  4. PANTOPRAZOLE [Concomitant]
     Active Substance: PANTOPRAZOLE
     Indication: Gastrooesophageal reflux disease
     Route: 065

REACTIONS (2)
  - Malignant melanoma [Recovering/Resolving]
  - Skin cancer [Recovering/Resolving]

NARRATIVE: CASE EVENT DATE: 20210301
